FAERS Safety Report 4845905-2 (Version None)
Quarter: 2005Q4

REPORT INFORMATION
  Report Type: 
  Country: None (occurrence: None)
  Receive Date: 20051201
  Receipt Date: 20051117
  Transmission Date: 20060501
  Serious: Yes (Life-Threatening, Hospitalization)
  Sender: FDA-Public Use
  Company Number: US015931

PATIENT
  Age: 49 Year
  Sex: Male

DRUGS (4)
  1. TRISENOX [Suspect]
     Indication: ACUTE PROMYELOCYTIC LEUKAEMIA
     Dosage: 9.52 MG QD INTRAVENOUS DRIP
     Route: 041
     Dates: start: 20050301, end: 20050325
  2. LOXOPROFEN SODIUM [Concomitant]
  3. FAMOTIDINE [Concomitant]
  4. PENTAZOCINE LACTATE [Concomitant]

REACTIONS (2)
  - SEPSIS [None]
  - STAPHYLOCOCCAL INFECTION [None]
